FAERS Safety Report 6357700-6 (Version None)
Quarter: 2009Q3

REPORT INFORMATION
  Report Type: 
  Country: None (occurrence: None)
  Receive Date: 20090916
  Receipt Date: 20090914
  Transmission Date: 20100115
  Serious: Yes (Other)
  Sender: FDA-Public Use
  Company Number: CH-BRISTOL-MYERS SQUIBB COMPANY-14777742

PATIENT

DRUGS (1)
  1. ORENCIA [Suspect]

REACTIONS (1)
  - NEUROPATHY PERIPHERAL [None]
